FAERS Safety Report 5952490-0 (Version None)
Quarter: 2008Q4

REPORT INFORMATION
  Report Type: 
  Country: None (occurrence: None)
  Receive Date: 20081113
  Receipt Date: 20081102
  Transmission Date: 20090506
  Serious: Yes (Disabling, Other)
  Sender: FDA-Public Use
  Company Number: US-PFIZER INC-2008092732

PATIENT
  Sex: Female

DRUGS (1)
  1. XANAX [Suspect]

REACTIONS (11)
  - ARTHRITIS [None]
  - DRUG HYPERSENSITIVITY [None]
  - DRUG WITHDRAWAL SYNDROME [None]
  - DYSPNOEA [None]
  - HAIR COLOUR CHANGES [None]
  - MUSCLE SPASMS [None]
  - PALLOR [None]
  - TEMPERATURE INTOLERANCE [None]
  - TONGUE DISORDER [None]
  - TRISMUS [None]
  - WEIGHT DECREASED [None]
